FAERS Safety Report 15185903 (Version 1)
Quarter: 2018Q3

REPORT INFORMATION
  Report Type: Report from Study
  Country: US (occurrence: US)
  Receive Date: 20180723
  Receipt Date: 20180723
  Transmission Date: 20181010
  Serious: No
  Sender: FDA-Public Use
  Company Number: US-EXELIXIS-CABO-17011692

PATIENT
  Age: 82 Year
  Sex: Male

DRUGS (20)
  1. CABOMETYX [Suspect]
     Active Substance: CABOZANTINIB S-MALATE
     Dosage: 40 MG, QD
     Route: 048
     Dates: end: 20170703
  2. LIPITOR [Concomitant]
     Active Substance: ATORVASTATIN CALCIUM
  3. MAGNESIUM OXIDE. [Concomitant]
     Active Substance: MAGNESIUM OXIDE
  4. PRILOSEC [Concomitant]
     Active Substance: OMEPRAZOLE MAGNESIUM
  5. SYMBICORT [Concomitant]
     Active Substance: BUDESONIDE\FORMOTEROL FUMARATE DIHYDRATE
  6. COREG [Concomitant]
     Active Substance: CARVEDILOL
  7. AMARYL [Concomitant]
     Active Substance: GLIMEPIRIDE
  8. GLUCOSE [Concomitant]
     Active Substance: DEXTROSE
  9. DECADRON [Concomitant]
     Active Substance: DEXAMETHASONE
  10. CABOMETYX [Suspect]
     Active Substance: CABOZANTINIB S-MALATE
     Indication: RENAL CANCER
     Dosage: 60 MG, QD
     Route: 048
     Dates: start: 20160728
  11. KLONOPIN [Concomitant]
     Active Substance: CLONAZEPAM
  12. CLARITIN [Concomitant]
     Active Substance: LORATADINE
  13. NITROSTAT [Concomitant]
     Active Substance: NITROGLYCERIN
  14. TAMSULOSIN [Concomitant]
     Active Substance: TAMSULOSIN
  15. VENTOLIN HFA [Concomitant]
     Active Substance: ALBUTEROL SULFATE
  16. AMLODIPINE [Concomitant]
     Active Substance: AMLODIPINE BESYLATE
  17. ASA [Concomitant]
     Active Substance: ASPIRIN
  18. CIPRO [Concomitant]
     Active Substance: CIPROFLOXACIN HYDROCHLORIDE
  19. EVEROLIMUS. [Concomitant]
     Active Substance: EVEROLIMUS
  20. LISINOPRIL. [Concomitant]
     Active Substance: LISINOPRIL

REACTIONS (1)
  - Malignant neoplasm progression [Unknown]

NARRATIVE: CASE EVENT DATE: 20170703
